FAERS Safety Report 8068942-6 (Version None)
Quarter: 2012Q1

REPORT INFORMATION
  Report Type: 
  Country: None (occurrence: None)
  Receive Date: 20120118
  Receipt Date: 20120102
  Transmission Date: 20120608
  Serious: Yes (Hospitalization)
  Sender: FDA-Public Use
  Company Number: FK201200046

PATIENT
  Age: 18 Month
  Sex: Female

DRUGS (3)
  1. ACYCLOVIR SODIUM [Suspect]
     Indication: HERPES SIMPLEX
     Dosage: 50 MG/KG/DAY, INTRAVENOUS (NOT OTHERWISE SPECIFIED))
     Route: 042
  2. ACYCLOVIR SODIUM [Suspect]
     Indication: HERPES ZOSTER
     Dosage: 50 MG/KG/DAY, INTRAVENOUS (NOT OTHERWISE SPECIFIED))
     Route: 042
  3. ACYCLOVIR SODIUM [Suspect]
     Indication: BULLOUS IMPETIGO
     Dosage: 50 MG/KG/DAY, INTRAVENOUS (NOT OTHERWISE SPECIFIED))
     Route: 042

REACTIONS (6)
  - DERMATITIS BULLOUS [None]
  - SKIN NECROSIS [None]
  - SCAB [None]
  - VIRAL INFECTION [None]
  - LYMPHADENOPATHY [None]
  - PURPURA [None]
